FAERS Safety Report 10055827 (Version 1)
Quarter: 2014Q2

REPORT INFORMATION
  Report Type: Spontaneous
  Country: US (occurrence: US)
  Receive Date: 20140403
  Receipt Date: 20140403
  Transmission Date: 20141212
  Serious: Yes (Hospitalization)
  Sender: FDA-Public Use
  Company Number: US-MYLANLABS-2014S1006799

PATIENT
  Age: 45 Year
  Sex: Female

DRUGS (5)
  1. AMITRIPTYLINE [Suspect]
     Indication: ANXIETY
     Dosage: APPROXIMATELY TWICE THE PRESCRIBED DAILY 300-MG DOSE
     Route: 065
  2. AMITRIPTYLINE [Suspect]
     Indication: OFF LABEL USE
     Dosage: APPROXIMATELY TWICE THE PRESCRIBED DAILY 300-MG DOSE
     Route: 065
  3. AMITRIPTYLINE [Suspect]
     Indication: ANXIETY
     Dosage: 50MG
     Route: 065
  4. AMITRIPTYLINE [Suspect]
     Indication: OFF LABEL USE
     Dosage: 50MG
     Route: 065
  5. OXYCODONE [Concomitant]
     Indication: BACK PAIN
     Route: 065

REACTIONS (5)
  - Overdose [Unknown]
  - Intentional product misuse [Unknown]
  - Drug dependence [Unknown]
  - Confusional state [Unknown]
  - Fall [Unknown]
